FAERS Safety Report 9636208 (Version 2)
Quarter: 2013Q4

REPORT INFORMATION
  Report Type: Report from Study
  Country: FR (occurrence: FR)
  Receive Date: 20131021
  Receipt Date: 20131021
  Transmission Date: 20140711
  Serious: Yes (Other)
  Sender: FDA-Public Use
  Company Number: FR-TEVA-323129USA

PATIENT
  Age: 70 Year
  Sex: Male
  Weight: 68.5 kg

DRUGS (3)
  1. TREANDA [Suspect]
     Dosage: 160 MILLIGRAM DAILY;
     Route: 042
     Dates: start: 20120103, end: 20120130
  2. RITUXIMAB [Suspect]
     Dosage: 890 MILLIGRAM DAILY;
     Route: 042
     Dates: start: 20120103, end: 20120130
  3. ACIDE FOLIQUE [Concomitant]
     Dosage: 5 MILLIGRAM DAILY;
     Dates: start: 2011

REACTIONS (1)
  - Hepatitis B [Not Recovered/Not Resolved]
